FAERS Safety Report 17744478 (Version 61)
Quarter: 2025Q3

REPORT INFORMATION
  Report Type: Report from Study
  Country: US (occurrence: US)
  Receive Date: 20200505
  Receipt Date: 20250916
  Transmission Date: 20251021
  Serious: Yes (Hospitalization, Other)
  Sender: TAKEDA
  Company Number: US-SHIRE-US202015186

PATIENT
  Age: 81 Year
  Sex: Female
  Weight: 64 kg

DRUGS (44)
  1. HUMAN IMMUNOGLOBULIN G [Suspect]
     Active Substance: HUMAN IMMUNOGLOBULIN G
     Indication: Immunodeficiency common variable
     Dosage: 40 GRAM, Q3WEEKS
  2. GAMMAGARD S/D [Suspect]
     Active Substance: HUMAN IMMUNOGLOBULIN G
     Indication: Primary immunodeficiency syndrome
  3. GAMMAGARD S/D [Suspect]
     Active Substance: HUMAN IMMUNOGLOBULIN G
     Indication: Immunodeficiency common variable
  4. IRON [Suspect]
     Active Substance: IRON
     Indication: Product used for unknown indication
  5. ACETAMINOPHEN [Concomitant]
     Active Substance: ACETAMINOPHEN
  6. DIPHENHYDRAMINE [Concomitant]
     Active Substance: DIPHENHYDRAMINE
  7. CETIRIZINE HYDROCHLORIDE [Concomitant]
     Active Substance: CETIRIZINE HYDROCHLORIDE
  8. LIDOCAINE [Concomitant]
     Active Substance: LIDOCAINE
  9. SODIUM CHLORIDE [Concomitant]
     Active Substance: SODIUM CHLORIDE
  10. EPINEPHRINE [Concomitant]
     Active Substance: EPINEPHRINE
  11. ORENCIA [Concomitant]
     Active Substance: ABATACEPT
  12. AMITRIPTYLINE [Concomitant]
     Active Substance: AMITRIPTYLINE
  13. PREDNISONE [Concomitant]
     Active Substance: PREDNISONE
  14. EYLEA [Concomitant]
     Active Substance: AFLIBERCEPT
  15. FOLIC ACID [Concomitant]
     Active Substance: FOLIC ACID
  16. METHOTREXATE [Concomitant]
     Active Substance: METHOTREXATE
  17. AMOXICILLIN [Concomitant]
     Active Substance: AMOXICILLIN
  18. ACETAMINOPHEN\HYDROCODONE [Concomitant]
     Active Substance: ACETAMINOPHEN\HYDROCODONE
  19. CYCLOBENZAPRINE HYDROCHLORIDE [Concomitant]
     Active Substance: CYCLOBENZAPRINE HYDROCHLORIDE
  20. VENTOLIN HFA [Concomitant]
     Active Substance: ALBUTEROL SULFATE
  21. PRILOSEC [Concomitant]
     Active Substance: OMEPRAZOLE MAGNESIUM
  22. ATENOLOL [Concomitant]
     Active Substance: ATENOLOL
  23. B50 COMPLEX [Concomitant]
  24. COENZYME Q10 [Concomitant]
     Active Substance: DIETARY SUPPLEMENT\UBIDECARENONE
  25. NORCO [Concomitant]
     Active Substance: ACETAMINOPHEN\HYDROCODONE BITARTRATE
  26. ACIDOPHILUS [Concomitant]
     Active Substance: LACTOBACILLUS ACIDOPHILUS
  27. VENTOLIN [Concomitant]
     Active Substance: ALBUTEROL SULFATE
  28. CETIRIZINE [Concomitant]
     Active Substance: CETIRIZINE HYDROCHLORIDE
  29. Herbal cleanser [Concomitant]
  30. COLESTIPOL [Concomitant]
     Active Substance: COLESTIPOL
  31. EZETIMIBE AND SIMVASTATIN [Concomitant]
     Active Substance: EZETIMIBE\SIMVASTATIN
  32. ALBUTEROL SULFATE [Concomitant]
     Active Substance: ALBUTEROL SULFATE
  33. VITAMIN D3 [Concomitant]
     Active Substance: CHOLECALCIFEROL
  34. SERTRALINE HYDROCHLORIDE [Concomitant]
     Active Substance: SERTRALINE HYDROCHLORIDE
  35. VITAMIN B COMPLEX [Concomitant]
     Active Substance: CYANOCOBALAMIN\DEXPANTHENOL\NIACINAMIDE\PYRIDOXINE HYDROCHLORIDE\RIBOFLAVIN 5^-PHOSPHATE SODIUM\THIA
  36. ZETIA [Concomitant]
     Active Substance: EZETIMIBE
  37. CEPHALEXIN [Concomitant]
     Active Substance: CEPHALEXIN
  38. PROLIA [Concomitant]
     Active Substance: DENOSUMAB
  39. VANCOMYCIN HYDROCHLORIDE [Concomitant]
     Active Substance: VANCOMYCIN HYDROCHLORIDE
  40. TRAMADOL HCL [Concomitant]
     Active Substance: TRAMADOL HYDROCHLORIDE
  41. GEMTESA [Concomitant]
     Active Substance: VIBEGRON
  42. LASIX [Concomitant]
     Active Substance: FUROSEMIDE
  43. GABAPENTIN [Concomitant]
     Active Substance: GABAPENTIN
  44. Coq [Concomitant]

REACTIONS (44)
  - Urinary tract infection [Recovered/Resolved]
  - Pneumonia aspiration [Unknown]
  - Diverticulitis [Unknown]
  - Nerve compression [Unknown]
  - Intestinal obstruction [Unknown]
  - Clostridium difficile infection [Unknown]
  - Cellulitis [Unknown]
  - Pelvic fracture [Unknown]
  - COVID-19 pneumonia [Unknown]
  - COVID-19 [Recovered/Resolved]
  - Spinal disorder [Unknown]
  - Fall [Unknown]
  - Musculoskeletal discomfort [Unknown]
  - Joint swelling [Unknown]
  - Gastrointestinal disorder [Unknown]
  - Blood immunoglobulin A abnormal [Unknown]
  - Joint dislocation [Unknown]
  - Poor venous access [Unknown]
  - Dental caries [Unknown]
  - Resorption bone increased [Unknown]
  - Herpes zoster [Not Recovered/Not Resolved]
  - Viral infection [Unknown]
  - Seasonal allergy [Unknown]
  - Drug hypersensitivity [Unknown]
  - Osteoporosis [Unknown]
  - Osteoarthritis [Unknown]
  - Arthritis [Unknown]
  - Bone density decreased [Unknown]
  - Musculoskeletal stiffness [Unknown]
  - Somnolence [Unknown]
  - Pain [Unknown]
  - Muscular weakness [Unknown]
  - Oropharyngeal pain [Unknown]
  - Abdominal pain lower [Unknown]
  - Muscle spasms [Unknown]
  - Back pain [Unknown]
  - Blood pressure increased [Unknown]
  - Pain in extremity [Unknown]
  - Abdominal pain [Unknown]
  - Pyrexia [Unknown]
  - Diarrhoea [Unknown]
  - Headache [Unknown]
  - Nausea [Unknown]
  - Fatigue [Unknown]

NARRATIVE: CASE EVENT DATE: 20210323
